FAERS Safety Report 7166668-4 (Version None)
Quarter: 2010Q4

REPORT INFORMATION
  Report Type: 
  Country: None (occurrence: None)
  Receive Date: 20101203
  Receipt Date: 20101118
  Transmission Date: 20110411
  Serious: Yes (Hospitalization)
  Sender: FDA-Public Use
  Company Number: 1000014968

PATIENT
  Age: 66 Year
  Sex: Male

DRUGS (10)
  1. ESCITALOPRAM [Suspect]
     Indication: DEPRESSION
     Dosage: 20 MG (10 MG,2 IN 1 D),ORAL
     Route: 048
     Dates: end: 20090501
  2. ESCITALOPRAM [Suspect]
     Indication: DEPRESSION
     Dosage: 20 MG (10 MG,2 IN 1 D),ORAL
     Route: 048
     Dates: start: 20090623, end: 20090719
  3. ESCITALOPRAM [Suspect]
     Indication: DEPRESSION
     Dosage: 10 MG (10 MG,1 IN 1 D),ORAL
     Route: 048
     Dates: start: 20090720
  4. FENOFIBRATE [Suspect]
     Dosage: ORAL
     Route: 048
     Dates: end: 20090701
  5. MIRTAZAPINE [Suspect]
     Indication: DEPRESSION
     Dosage: ORAL
     Route: 048
     Dates: end: 20090501
  6. MIRTAZAPINE [Suspect]
     Indication: DEPRESSION
     Dosage: ORAL
     Route: 048
     Dates: start: 20090623, end: 20090720
  7. IMOVANE (ZOPICLONE) (ZOPICLONE) [Concomitant]
  8. LARGACTIL (CHLORPROMAZINE) (CHLORPROMAZINE) [Concomitant]
  9. SERESTA (OXAZEPAM) (OXAZEPAM) [Concomitant]
  10. TERALITHE (LITHIUM CARBONATE) (LITHIUM CARBONATE) [Concomitant]

REACTIONS (6)
  - AGITATION [None]
  - CYTOLYTIC HEPATITIS [None]
  - HYPOMANIA [None]
  - LOGORRHOEA [None]
  - MAJOR DEPRESSION [None]
  - TACHYPHRENIA [None]
